FAERS Safety Report 9820394 (Version 2)
Quarter: 2014Q1

REPORT INFORMATION
  Report Type: Spontaneous
  Country: US (occurrence: None)
  Receive Date: 20131223
  Receipt Date: 20140228
  Transmission Date: 20141002
  Serious: Yes (Other)
  Sender: FDA-Public Use
  Company Number: 221343

PATIENT
  Age: 45 Year
  Sex: Female

DRUGS (4)
  1. PICATO [Suspect]
     Indication: ACTINIC KERATOSIS
     Route: 061
     Dates: start: 20130419, end: 20130419
  2. TOPAMAX (TOPIRAMATE) [Concomitant]
  3. ZYRTEC (CETIRIZINE HYDROCHLORIDE) [Concomitant]
  4. RESTATIS (CICLOSPORIN) [Concomitant]

REACTIONS (3)
  - Application site vesicles [None]
  - Application site erythema [None]
  - Incorrect drug administration duration [None]
